FAERS Safety Report 5300490-6 (Version None)
Quarter: 2007Q2

REPORT INFORMATION
  Report Type: 
  Country: None (occurrence: None)
  Receive Date: 20070418
  Receipt Date: 20070406
  Transmission Date: 20071010
  Serious: Yes (Hospitalization, Other)
  Sender: FDA-Public Use
  Company Number: PHEH2007US04397

PATIENT
  Age: 78 Year

DRUGS (1)
  1. ZELNORM [Suspect]
     Indication: CONSTIPATION
     Dosage: 6 MG, QD
     Dates: start: 20030101, end: 20070405

REACTIONS (3)
  - ARTERIOSCLEROSIS [None]
  - OEDEMA PERIPHERAL [None]
  - THROMBOSIS [None]
